FAERS Safety Report 16071208 (Version 1)
Quarter: 2019Q1

REPORT INFORMATION
  Report Type: Spontaneous
  Country: US (occurrence: US)
  Receive Date: 20190314
  Receipt Date: 20190314
  Transmission Date: 20190418
  Serious: No
  Sender: FDA-Public Use
  Company Number: US-PFIZER INC-2019102604

PATIENT
  Age: 83 Year
  Sex: Female
  Weight: 72.57 kg

DRUGS (1)
  1. LYRICA [Suspect]
     Active Substance: PREGABALIN
     Indication: NEURALGIA
     Dosage: 50 MG, 1X/DAY

REACTIONS (4)
  - Weight abnormal [Unknown]
  - Dizziness [Unknown]
  - Pollakiuria [Unknown]
  - Lymphoedema [Not Recovered/Not Resolved]
